FAERS Safety Report 25808195 (Version 4)
Quarter: 2025Q4

REPORT INFORMATION
  Report Type: Spontaneous
  Country: CN (occurrence: CN)
  Receive Date: 20250916
  Receipt Date: 20251006
  Transmission Date: 20260117
  Serious: Yes (Hospitalization, Other)
  Sender: PFIZER
  Company Number: CN-PFIZER INC-PV202500110045

PATIENT
  Age: 72 Year
  Sex: Male
  Weight: 58 kg

DRUGS (5)
  1. BRENTUXIMAB VEDOTIN [Suspect]
     Active Substance: BRENTUXIMAB VEDOTIN
     Indication: Hodgkin^s disease
     Dosage: 1.2 MG/KG (72 MG), INFUSION ON DAYS 1 AND 15
     Route: 042
     Dates: start: 20240629
  2. DOXORUBICIN [Concomitant]
     Active Substance: DOXORUBICIN
     Indication: Hodgkin^s disease
     Dosage: 25 MG/M2 (40MG), INFUSION ON DAYS 1 AND 15
     Route: 042
     Dates: start: 20240629
  3. VINDESINE [Concomitant]
     Active Substance: VINDESINE
     Indication: Hodgkin^s disease
     Dosage: 4 MG, INFUSION ON DAYS 1 AND 15
     Route: 042
     Dates: start: 20240629
  4. DACARBAZINE [Concomitant]
     Active Substance: DACARBAZINE
     Indication: Hodgkin^s disease
     Dosage: 375 MG/M2 (600 MG), INFUSION ON DAYS 1 AND 15
     Route: 042
     Dates: start: 20240629
  5. IMMUNE GLOBULIN NOS [Concomitant]
     Active Substance: IMMUNE GLOBULIN NOS
     Indication: Neutropenia
     Dosage: 10 G/DAY
     Route: 042

REACTIONS (1)
  - Insulin resistance [Recovered/Resolved]

NARRATIVE: CASE EVENT DATE: 20240101
